FAERS Safety Report 7150376-X (Version None)
Quarter: 2010Q4

REPORT INFORMATION
  Report Type: 
  Country: None (occurrence: None)
  Receive Date: 20101207
  Receipt Date: 20101207
  Transmission Date: 20110411
  Serious: Yes (Other)
  Sender: FDA-Public Use
  Company Number: None

PATIENT
  Sex: Female
  Weight: 108.9 kg

DRUGS (3)
  1. PIPERCILLIN/TAZOBACTAM 2.25GM [Suspect]
     Indication: UROSEPSIS
     Dosage: 2.25GM Q8HR IV
     Route: 042
     Dates: start: 20100409, end: 20100410
  2. VANCOMYCIN [Suspect]
     Indication: UROSEPSIS
     Dosage: 1GM Q12H IV
     Route: 042
     Dates: start: 20100409, end: 20100410
  3. METRONIDAZOLE [Concomitant]

REACTIONS (6)
  - HEPATIC FUNCTION ABNORMAL [None]
  - RASH MACULO-PAPULAR [None]
  - RENAL FAILURE ACUTE [None]
  - SEPSIS [None]
  - STRAWBERRY TONGUE [None]
  - THROMBOCYTOPENIA [None]
